FAERS Safety Report 10146033 (Version 1)
Quarter: 2014Q2

REPORT INFORMATION
  Report Type: Spontaneous
  Country: IN (occurrence: IN)
  Receive Date: 20140501
  Receipt Date: 20140501
  Transmission Date: 20141212
  Serious: Yes (Other)
  Sender: FDA-Public Use
  Company Number: IN-MYLANLABS-2014S1009361

PATIENT
  Age: 33 Year
  Sex: Female

DRUGS (2)
  1. PHENYTOIN [Suspect]
     Indication: INTENTIONAL OVERDOSE
     Dosage: CONSUMPTION OF 15 TABLETS
     Route: 048
  2. PHENYTOIN [Suspect]
     Indication: OFF LABEL USE
     Dosage: CONSUMPTION OF 15 TABLETS
     Route: 048

REACTIONS (4)
  - Intentional overdose [Recovered/Resolved]
  - Convulsion [Recovered/Resolved]
  - Loss of consciousness [Unknown]
  - Gangrene [Unknown]
